FAERS Safety Report 15880212 (Version 1)
Quarter: 2019Q1

REPORT INFORMATION
  Report Type: Spontaneous
  Country: US (occurrence: US)
  Receive Date: 20190128
  Receipt Date: 20190128
  Transmission Date: 20190417
  Serious: Yes (Other)
  Sender: FDA-Public Use
  Company Number: US-PFIZER INC-2015366255

PATIENT
  Age: 49 Year
  Sex: Female

DRUGS (11)
  1. LYRICA [Suspect]
     Active Substance: PREGABALIN
     Indication: PAIN
     Dosage: 150 MG, AS NEEDED (1 CAPSULE EVERY 6 HOURS)
     Route: 048
  2. METHADONE [Concomitant]
     Active Substance: METHADONE HYDROCHLORIDE
     Dosage: 10 MG, 2X/DAY (2 TABLET(S) PO BID MUST LAST 30 DAYS MAX 4 PER DAY)
     Route: 048
     Dates: start: 20150703, end: 20150801
  3. SOMA [Concomitant]
     Active Substance: CARISOPRODOL
     Indication: MUSCLE SPASMS
     Dosage: 350 MG, AS NEEDED (1 TABLET(S) PO TID PRN AS NEEDED)
     Route: 048
     Dates: start: 20150613, end: 20150910
  4. MOTRIN [Concomitant]
     Active Substance: IBUPROFEN
     Dosage: 800 MG, AS NEEDED (TAKE 1 TABLET BY MOUTH TWICE DAILY AS NEEDED)
     Route: 048
     Dates: start: 20150604, end: 20150901
  5. METHADONE [Concomitant]
     Active Substance: METHADONE HYDROCHLORIDE
     Indication: PAIN
     Dosage: 10 MG, 2X/DAY (2 TABLET(S) PO BID MUST LAST 30 DAYS MAX 4 PER DAY)
     Route: 048
     Dates: start: 20150604, end: 20150703
  6. TRAMADOL. [Concomitant]
     Active Substance: TRAMADOL
     Dosage: UNK
  7. ULTRAM [Concomitant]
     Active Substance: TRAMADOL HYDROCHLORIDE
     Indication: BREAKTHROUGH PAIN
     Dosage: 50 MG, AS NEEDED(1TABLET(S) PO TID PRN AS NEEDED FOR PAIN MAX 3 PER DAY MUST LAST 30 DAYS AS NEEDED)
     Route: 048
     Dates: start: 20150604, end: 20150901
  8. LYRICA [Suspect]
     Active Substance: PREGABALIN
     Indication: NECK PAIN
     Dosage: 150 MG, 2X/DAY
     Route: 048
     Dates: start: 20150604, end: 20150703
  9. LYRICA [Suspect]
     Active Substance: PREGABALIN
     Indication: INTERVERTEBRAL DISC DEGENERATION
     Dosage: 300 MG, 2X/DAY (2 CAPSULES TWICE A DAY)
     Route: 048
  10. METHADONE [Concomitant]
     Active Substance: METHADONE HYDROCHLORIDE
     Dosage: 10 MG, 2X/DAY (2 TABLET(S) PO BID MUST LAST 30 DAYS MAX 4 PER DAY)
     Route: 048
     Dates: start: 20150801, end: 20150830
  11. EXCEDRIN [Concomitant]
     Active Substance: ACETAMINOPHEN\ASPIRIN\CAFFEINE
     Dosage: UNK

REACTIONS (1)
  - Upper limb fracture [Unknown]
